FAERS Safety Report 11117149 (Version 2)
Quarter: 2015Q2

REPORT INFORMATION
  Report Type: Spontaneous
  Country: US (occurrence: US)
  Receive Date: 20150515
  Receipt Date: 20150604
  Transmission Date: 20150821
  Serious: No
  Sender: FDA-Public Use
  Company Number: US-PFIZER INC-2015164630

PATIENT

DRUGS (13)
  1. REMICADE [Suspect]
     Active Substance: INFLIXIMAB
     Dosage: UNK
  2. CYCLOBENZAPRINE [Concomitant]
     Active Substance: CYCLOBENZAPRINE
     Dosage: UNK
  3. HUMIRA [Suspect]
     Active Substance: ADALIMUMAB
     Dosage: UNK
  4. ENBREL [Suspect]
     Active Substance: ETANERCEPT
     Dosage: UNK
  5. ORENCIA [Concomitant]
     Active Substance: ABATACEPT
     Dosage: UNK
  6. SULFASALAZINE. [Suspect]
     Active Substance: SULFASALAZINE
     Dosage: UNK
  7. CIMZIA [Concomitant]
     Active Substance: CERTOLIZUMAB PEGOL
     Dosage: UNK
  8. ZOFRAN [Concomitant]
     Active Substance: ONDANSETRON HYDROCHLORIDE
     Dosage: UNK
  9. METHOTREXATE SODIUM. [Suspect]
     Active Substance: METHOTREXATE SODIUM
     Dosage: UNK
  10. SIMPONI [Concomitant]
     Active Substance: GOLIMUMAB
     Dosage: UNK
  11. NORCO [Concomitant]
     Active Substance: ACETAMINOPHEN\HYDROCODONE BITARTRATE
     Dosage: UNK
  12. ARAVA [Concomitant]
     Active Substance: LEFLUNOMIDE
     Dosage: UNK
  13. MOBIC [Concomitant]
     Active Substance: MELOXICAM
     Dosage: UNK

REACTIONS (14)
  - Joint injury [Unknown]
  - Pain [Unknown]
  - Eyelid function disorder [Unknown]
  - Insomnia [Unknown]
  - Nausea [Unknown]
  - Alopecia [Unknown]
  - Arthralgia [Unknown]
  - Drug hypersensitivity [Unknown]
  - Migraine [Unknown]
  - Cardiac disorder [Unknown]
  - Injection site erythema [Unknown]
  - Vomiting [Unknown]
  - Weight increased [Unknown]
  - Injection site pruritus [Unknown]
